FAERS Safety Report 8179662 (Version 2)
Quarter: 2013Q2

REPORT INFORMATION
  Report Type: Spontaneous
  Country: US (occurrence: US)
  Receive Date: 20111013
  Receipt Date: 20130412
  Transmission Date: 20140414
  Serious: Yes (Hospitalization)
  Sender: FDA-Public Use
  Company Number: US-GLAXOSMITHKLINE-A0837112A

PATIENT
  Age: 60 Year
  Sex: Female

DRUGS (1)
  1. AVANDIA [Suspect]
     Indication: TYPE 2 DIABETES MELLITUS
     Dosage: 8MG PER DAY
     Route: 048

REACTIONS (6)
  - Cerebrovascular accident [Unknown]
  - Coronary artery occlusion [Unknown]
  - Aortic valve replacement [Unknown]
  - Atrial fibrillation [Unknown]
  - Carotid artery occlusion [Unknown]
  - Coronary artery disease [Unknown]
